FAERS Safety Report 24994617 (Version 1)
Quarter: 2025Q1

REPORT INFORMATION
  Report Type: Spontaneous
  Country: US (occurrence: None)
  Receive Date: 20250220
  Receipt Date: 20250220
  Transmission Date: 20250409
  Serious: Yes (Other)
  Sender: FDA-CTU
  Company Number: None

PATIENT
  Age: 56 Year
  Sex: Male

DRUGS (11)
  1. KESIMPTA [Suspect]
     Active Substance: OFATUMUMAB
     Indication: Multiple sclerosis
     Dosage: FREQUENCY : MONTHLY;?
     Route: 058
  2. AMITRIPTYLIN TAB 10MG [Concomitant]
  3. ATORVASTATIN TAB 10MG [Concomitant]
  4. BRILINTA TAB 90MG [Concomitant]
  5. CARVEDILOL TAB 3.125MG [Concomitant]
  6. CARVEDILOL [Concomitant]
     Active Substance: CARVEDILOL
  7. ACETAMINOPHEN\HYDROCODONE [Concomitant]
     Active Substance: ACETAMINOPHEN\HYDROCODONE
  8. PREGABALIN CAP 75MG [Concomitant]
  9. RANOLAZINE TAB S00MG ER [Concomitant]
  10. SERTRALINE TAB S0MG [Concomitant]
  11. TIZANIDINE HYDROCHLORIDE [Concomitant]
     Active Substance: TIZANIDINE HYDROCHLORIDE

REACTIONS (3)
  - Multiple sclerosis relapse [None]
  - Fall [None]
  - Myocardial infarction [None]

NARRATIVE: CASE EVENT DATE: 20250203
